FAERS Safety Report 5412059-3 (Version None)
Quarter: 2007Q3

REPORT INFORMATION
  Report Type: 
  Country: None (occurrence: None)
  Receive Date: 20070809
  Receipt Date: 20070801
  Transmission Date: 20080115
  Serious: Yes (Other)
  Sender: FDA-Public Use
  Company Number: 07H-163-0312992-00

PATIENT
  Age: 22 Year
  Sex: Male

DRUGS (5)
  1. FENTANYL CITRATE [Suspect]
     Indication: INDUCTION OF ANAESTHESIA
     Dosage: 100 MG
  2. PROPOFOL [Suspect]
     Indication: INDUCTION OF ANAESTHESIA
     Dosage: 200 MG
  3. MIDAZOLAM HCL [Concomitant]
  4. OXYGEN (OXYGEN) [Concomitant]
  5. CISATRACURIUM (CISTRACURIUM) [Concomitant]

REACTIONS (4)
  - ENDOTRACHEAL INTUBATION COMPLICATION [None]
  - LIP DISCOLOURATION [None]
  - SWELLING FACE [None]
  - VEIN DISORDER [None]
